FAERS Safety Report 9347990 (Version 2)
Quarter: 2014Q1

REPORT INFORMATION
  Report Type: Report from Study
  Country: RO (occurrence: RO)
  Receive Date: 20130614
  Receipt Date: 20140129
  Transmission Date: 20141002
  Serious: Yes (Hospitalization)
  Sender: FDA-Public Use
  Company Number: RO-UCBSA-081577

PATIENT
  Age: 52 Year
  Sex: Female
  Weight: 52 kg

DRUGS (3)
  1. LACOSAMIDE [Suspect]
     Indication: EPILEPSY
     Route: 048
     Dates: start: 20130228, end: 20130310
  2. MOVALIS [Concomitant]
     Indication: BACK PAIN
     Route: 048
     Dates: start: 20130301, end: 20130305
  3. MYDOCALM [Concomitant]
     Indication: BACK PAIN
     Route: 048
     Dates: start: 20130301, end: 20130305

REACTIONS (3)
  - Leukocytosis [Recovered/Resolved]
  - Urinary tract infection [Recovered/Resolved]
  - Vulvovaginitis trichomonal [Recovered/Resolved]
